FAERS Safety Report 5358264-6 (Version None)
Quarter: 2007Q2

REPORT INFORMATION
  Report Type: 
  Country: None (occurrence: None)
  Receive Date: 20070613
  Receipt Date: 20070613
  Transmission Date: 20071010
  Serious: Yes (Death)
  Sender: FDA-Public Use
  Company Number: None

PATIENT
  Age: 9 Year
  Sex: Male
  Weight: 24.0406 kg

DRUGS (10)
  1. VANCOMYCIN [Suspect]
     Indication: OSTEOMYELITIS
     Dosage: 75MG IV Q12H
     Route: 042
     Dates: start: 20070213, end: 20070610
  2. BACLOFEN [Concomitant]
  3. CLONAZEPAM [Concomitant]
  4. LAMICTAL [Concomitant]
  5. VALIUM [Concomitant]
  6. ZANTAC [Concomitant]
  7. MELANTONIN [Concomitant]
  8. CROMOLYN SODIUM [Concomitant]
  9. PULMICORT [Concomitant]
  10. XOPENEX [Concomitant]

REACTIONS (1)
  - DEATH [None]
